FAERS Safety Report 7796584-6 (Version None)
Quarter: 2011Q4

REPORT INFORMATION
  Report Type: 
  Country: None (occurrence: None)
  Receive Date: 20111005
  Receipt Date: 20110928
  Transmission Date: 20120403
  Serious: Yes (Other)
  Sender: FDA-Public Use
  Company Number: JP-PFIZER INC-2011219219

PATIENT
  Age: 24 Year
  Sex: Female

DRUGS (2)
  1. PREMARIN [Suspect]
     Dosage: UNK
     Route: 048
     Dates: start: 20110914
  2. LUTORAL [Concomitant]

REACTIONS (3)
  - ANDROGENS ABNORMAL [None]
  - INSULIN RESISTANCE [None]
  - THIRST [None]
